FAERS Safety Report 5855781-7 (Version None)
Quarter: 2008Q3

REPORT INFORMATION
  Report Type: 
  Country: None (occurrence: None)
  Receive Date: 20080825
  Receipt Date: 20080211
  Transmission Date: 20090109
  Serious: Yes (Other)
  Sender: FDA-Public Use
  Company Number: GB-KINGPHARMUSA00001-K200800176

PATIENT

DRUGS (1)
  1. SEPTRA [Suspect]

REACTIONS (1)
  - TOXIC EPIDERMAL NECROLYSIS [None]
